FAERS Safety Report 6248692-9 (Version None)
Quarter: 2009Q2

REPORT INFORMATION
  Report Type: 
  Country: None (occurrence: None)
  Receive Date: 20090624
  Receipt Date: 20090608
  Transmission Date: 20091009
  Serious: Yes (Hospitalization)
  Sender: FDA-Public Use
  Company Number: 2009AL000595

PATIENT
  Age: 80 Year
  Sex: Female

DRUGS (7)
  1. DIGOXIN [Suspect]
     Dosage: 0.125 MG, DAILY, PO
     Route: 048
  2. ASPIRIN [Concomitant]
  3. CALTRATE [Concomitant]
  4. CENTRUM SILVER [Concomitant]
  5. DARVOCET [Concomitant]
  6. ENALAPRIL [Concomitant]
  7. NORVASC [Concomitant]

REACTIONS (9)
  - ACTIVITIES OF DAILY LIVING IMPAIRED [None]
  - ANXIETY [None]
  - FAMILY STRESS [None]
  - IMPAIRED WORK ABILITY [None]
  - INJURY [None]
  - MENTAL DISORDER [None]
  - NAUSEA [None]
  - SOCIAL PROBLEM [None]
  - VOMITING [None]
